FAERS Safety Report 20988359 (Version 1)
Quarter: 2022Q2

REPORT INFORMATION
  Report Type: Spontaneous
  Country: US (occurrence: None)
  Receive Date: 20220620
  Receipt Date: 20220620
  Transmission Date: 20220720
  Serious: Yes (Other)
  Sender: FDA-Public Use
  Company Number: None

PATIENT
  Age: 13 Year
  Sex: Male
  Weight: 33.75 kg

DRUGS (3)
  1. VILOXAZINE [Suspect]
     Active Substance: VILOXAZINE
     Indication: Attention deficit hyperactivity disorder
     Dosage: 100MG DAILY ORAL?
     Route: 048
  2. AMANTADINE [Concomitant]
     Active Substance: AMANTADINE
     Dates: start: 20190501
  3. TRAZODONE [Concomitant]
     Active Substance: TRAZODONE HYDROCHLORIDE
     Dates: start: 20181101

REACTIONS (1)
  - Partial seizures [None]

NARRATIVE: CASE EVENT DATE: 20220617
